FAERS Safety Report 8100575-5 (Version None)
Quarter: 2012Q1

REPORT INFORMATION
  Report Type: 
  Country: None (occurrence: None)
  Receive Date: 20120129
  Receipt Date: 20111122
  Transmission Date: 20120608
  Serious: No
  Sender: FDA-Public Use
  Company Number: US-ABBOTT-11P-163-0875402-00

PATIENT
  Sex: Female
  Weight: 131.21 kg

DRUGS (5)
  1. NEXIUM [Concomitant]
     Indication: GASTROOESOPHAGEAL REFLUX DISEASE
  2. HUMIRA [Suspect]
     Indication: PSORIATIC ARTHROPATHY
     Dates: start: 20091201, end: 20110828
  3. MULTI-VITAMINS [Concomitant]
     Indication: VITAMIN SUPPLEMENTATION
  4. HUMIRA [Suspect]
     Dates: start: 20111113
  5. NASONEX [Concomitant]
     Indication: HYPERSENSITIVITY

REACTIONS (7)
  - DIZZINESS [None]
  - ARTHRALGIA [None]
  - HEADACHE [None]
  - AURA [None]
  - MIGRAINE [None]
  - PSORIATIC ARTHROPATHY [None]
  - EYE PAIN [None]
